FAERS Safety Report 7386016-4 (Version None)
Quarter: 2011Q1

REPORT INFORMATION
  Report Type: 
  Country: None (occurrence: None)
  Receive Date: 20110329
  Receipt Date: 20110329
  Transmission Date: 20110831
  Serious: Yes (Other)
  Sender: FDA-Public Use
  Company Number: None

PATIENT
  Age: 36 Year
  Sex: Female
  Weight: 54.4316 kg

DRUGS (3)
  1. SEROQUEL [Suspect]
     Indication: INSOMNIA
     Dosage: 100 MG DAILY ORAL
     Route: 048
  2. SEROQUEL [Suspect]
     Indication: DEPRESSION
     Dosage: 100 MG DAILY ORAL
     Route: 048
  3. SEROQUEL [Suspect]
     Indication: ANXIETY
     Dosage: 100 MG DAILY ORAL
     Route: 048

REACTIONS (1)
  - EYELID PTOSIS [None]
